FAERS Safety Report 6035495-3 (Version None)
Quarter: 2009Q1

REPORT INFORMATION
  Report Type: 
  Country: None (occurrence: None)
  Receive Date: 20090112
  Receipt Date: 20090112
  Transmission Date: 20090719
  Serious: Yes (Hospitalization)
  Sender: FDA-Public Use
  Company Number: None

PATIENT
  Sex: Female
  Weight: 82.9 kg

DRUGS (9)
  1. VINORELBINE [Suspect]
     Indication: BREAST CANCER
     Dosage: 25MG/M2 WEEKLY IV
     Route: 042
     Dates: start: 20080520, end: 20081230
  2. CLONAZEPAM [Concomitant]
  3. COMPAZINE [Concomitant]
  4. EFFEXOR XR [Concomitant]
  5. LORAZEPAM [Concomitant]
  6. ZESTORETIC [Concomitant]
  7. LEVAQUIN [Concomitant]
  8. BEVACIZUMAB [Concomitant]
  9. HERCEPTIN [Concomitant]

REACTIONS (8)
  - ADRENAL INSUFFICIENCY [None]
  - ANOREXIA [None]
  - BLOOD SODIUM DECREASED [None]
  - DIARRHOEA [None]
  - FATIGUE [None]
  - HAEMATOCRIT DECREASED [None]
  - HAEMOGLOBIN DECREASED [None]
  - INAPPROPRIATE ANTIDIURETIC HORMONE SECRETION [None]
